FAERS Safety Report 5228034-8 (Version None)
Quarter: 2007Q1

REPORT INFORMATION
  Report Type: 
  Country: None (occurrence: None)
  Receive Date: 20061201
  Receipt Date: 20061030
  Transmission Date: 20070707
  Serious: Yes (Other)
  Sender: FDA-Public Use
  Company Number: 2006-0010514

PATIENT
  Age: 37 Year
  Sex: Male
  Weight: 62.9139 kg

DRUGS (6)
  1. TRUVADA [Suspect]
     Indication: HIV INFECTION
     Dosage: 1 DOSAGE FORMS, 1 IN 1 D, ORAL
     Route: 048
     Dates: start: 20040901, end: 20060721
  2. KALETRA [Concomitant]
  3. VIRAMUNE [Concomitant]
  4. BACTRIM DS [Concomitant]
  5. ALBUTEROL INHALER (SALBUTAMOL) [Concomitant]
  6. ACYCLOVIR [Concomitant]

REACTIONS (1)
  - FANCONI SYNDROME ACQUIRED [None]
